FAERS Safety Report 9268560 (Version 1)
Quarter: 2013Q2

REPORT INFORMATION
  Report Type: Spontaneous
  Country: BE (occurrence: BE)
  Receive Date: 20130502
  Receipt Date: 20130502
  Transmission Date: 20140414
  Serious: Yes (Death)
  Sender: FDA-Public Use
  Company Number: BE-BAXTER-2013BAX015573

PATIENT
  Age: 81 Year
  Sex: Male

DRUGS (2)
  1. EXTRANEAL, SOLUTION POUR DIALYSE P?RITON?ALE [Suspect]
     Indication: RENAL FAILURE
     Route: 033
  2. PHYSIONEAL 40 GLUCOSE 1.36% [Suspect]
     Indication: RENAL FAILURE
     Route: 033

REACTIONS (1)
  - Death [Fatal]
